FAERS Safety Report 11038620 (Version 1)
Quarter: 2015Q2

REPORT INFORMATION
  Report Type: Spontaneous
  Country: CA (occurrence: None)
  Receive Date: 20150415
  Receipt Date: 20150415
  Transmission Date: 20150821
  Serious: Yes (Hospitalization)
  Sender: FDA-Public Use
  Company Number: FK201501645

PATIENT
  Age: 24 Year
  Sex: Male
  Weight: 104 kg

DRUGS (10)
  1. CEFTRIAXONE. [Suspect]
     Active Substance: CEFTRIAXONE
     Indication: PRODUCT USED FOR UNKNOWN INDICATION
     Dosage: 2 DRAM
     Route: 042
     Dates: start: 20150226, end: 20150315
  2. CLOTRIMAZOLE 1% (CLOTRIMAZOLE) [Concomitant]
  3. IBUPROFEN (IBUPROFEN) [Concomitant]
     Active Substance: IBUPROFEN
  4. VANCOMYCIN (VANCOMYCIN) [Concomitant]
     Active Substance: VANCOMYCIN
  5. DALTEPARIN (DALTEPARIN) [Concomitant]
  6. OXAZEPAM (OXAZEPAM) [Concomitant]
     Active Substance: OXAZEPAM
  7. GABAPENTIN (GABAPENTIN) [Concomitant]
     Active Substance: GABAPENTIN
  8. QUETIAPINE (QUETIAPINE) [Concomitant]
     Active Substance: QUETIAPINE
  9. ACETAMINOPHEN (PARACETAMOL) [Concomitant]
     Active Substance: ACETAMINOPHEN
  10. CITALOPRAM (CITALOPRAM) [Concomitant]
     Active Substance: CITALOPRAM HYDROBROMIDE

REACTIONS (5)
  - Chills [None]
  - Liver function test abnormal [None]
  - Fatigue [None]
  - Night sweats [None]
  - Pyrexia [None]
